FAERS Safety Report 5476125-9 (Version None)
Quarter: 2007Q4

REPORT INFORMATION
  Report Type: 
  Country: None (occurrence: None)
  Receive Date: 20071003
  Receipt Date: 20070926
  Transmission Date: 20080405
  Serious: Yes (Other)
  Sender: FDA-Public Use
  Company Number: FR-ASTRAZENECA-2007CG01052

PATIENT
  Age: 23002 Day
  Sex: Male
  Weight: 66 kg

DRUGS (5)
  1. CRESTOR [Suspect]
     Route: 048
     Dates: start: 20060101, end: 20070615
  2. ATENOLOL [Concomitant]
  3. OMEPRAZOLE [Concomitant]
     Indication: GASTRITIS
  4. EZETROL [Concomitant]
  5. KARDEGIC [Concomitant]

REACTIONS (1)
  - HYPERTRIGLYCERIDAEMIA [None]
